FAERS Safety Report 8030230 (Version 3)
Quarter: 2012Q4

REPORT INFORMATION
  Report Type: Report from Study
  Country: US (occurrence: US)
  Receive Date: 20110712
  Receipt Date: 20120921
  Transmission Date: 20130627
  Serious: Yes (Hospitalization)
  Sender: FDA-Public Use
  Company Number: US-JNJFOC-20110701304

PATIENT
  Age: 16 Year
  Sex: Female
  Weight: 50.2 kg

DRUGS (3)
  1. REMICADE [Suspect]
     Indication: INFLAMMATORY BOWEL DISEASE
     Route: 042
     Dates: start: 20071001, end: 20110417
  2. 5-ASA [Concomitant]
  3. ELAVIL [Concomitant]

REACTIONS (1)
  - Crohn^s disease [Recovered/Resolved]
